FAERS Safety Report 6736779-3 (Version None)
Quarter: 2010Q2

REPORT INFORMATION
  Report Type: 
  Country: None (occurrence: None)
  Receive Date: 20100521
  Receipt Date: 20100510
  Transmission Date: 20101027
  Serious: Yes (Other)
  Sender: FDA-Public Use
  Company Number: DE-ELI_LILLY_AND_COMPANY-DE201005003592

PATIENT
  Age: 38 Year
  Sex: Female

DRUGS (2)
  1. ZYPREXA [Suspect]
     Indication: SCHIZOAFFECTIVE DISORDER
     Dosage: 5 MG, DAILY (1/D)
     Route: 048
     Dates: start: 20020101, end: 20100509
  2. PANTOPRAZOLE SODIUM [Concomitant]
     Dosage: UNK, AS NEEDED

REACTIONS (5)
  - CONCUSSION [None]
  - HEADACHE [None]
  - ILLUSION [None]
  - INJURY [None]
  - MEMORY IMPAIRMENT [None]
